FAERS Safety Report 7224314-5 (Version None)
Quarter: 2011Q1

REPORT INFORMATION
  Report Type: 
  Country: None (occurrence: None)
  Receive Date: 20110113
  Receipt Date: 20110106
  Transmission Date: 20110831
  Serious: Yes (Hospitalization)
  Sender: FDA-Public Use
  Company Number: US-ELI_LILLY_AND_COMPANY-US201101001501

PATIENT
  Age: 72 Year
  Sex: Female
  Weight: 71.202 kg

DRUGS (2)
  1. BYETTA [Suspect]
     Indication: DIABETES MELLITUS
     Route: 058
  2. METFORMIN [Concomitant]
     Indication: DIABETES MELLITUS

REACTIONS (10)
  - BLOOD GLUCOSE INCREASED [None]
  - HYPERHIDROSIS [None]
  - ASTHENIA [None]
  - PROCEDURAL PAIN [None]
  - BLOOD GLUCOSE DECREASED [None]
  - HIP ARTHROPLASTY [None]
  - TREMOR [None]
  - ALOPECIA [None]
  - DIZZINESS [None]
  - SLEEP DISORDER [None]
